FAERS Safety Report 10516841 (Version 1)
Quarter: 2014Q4

REPORT INFORMATION
  Report Type: Spontaneous
  Country: US (occurrence: None)
  Receive Date: 20141003
  Receipt Date: 20141003
  Transmission Date: 20150528
  Serious: Yes (Other)
  Sender: FDA-Public Use
  Company Number: 1415998

PATIENT
  Sex: Female

DRUGS (1)
  1. PEGASYS [Suspect]
     Active Substance: PEGINTERFERON ALFA-2A
     Indication: HEPATITIS C
     Dosage: ONCE WEEKLY FOR 6 WEEKS ( 45 UG, 1 IN 1 WK), SUBCUTANEOUS
     Route: 058
     Dates: start: 20140513

REACTIONS (4)
  - Nausea [None]
  - Night sweats [None]
  - Blood glucose increased [None]
  - Rash pruritic [None]
